FAERS Safety Report 9422696 (Version 1)
Quarter: 2013Q3

REPORT INFORMATION
  Report Type: Spontaneous
  Country: US (occurrence: US)
  Receive Date: 20130726
  Receipt Date: 20130726
  Transmission Date: 20140515
  Serious: No
  Sender: FDA-Public Use
  Company Number: US-MYLANLABS-2013S1004101

PATIENT
  Age: 66 Year
  Sex: Female

DRUGS (5)
  1. CLONIDINE HYDROCHLORIDE [Suspect]
     Indication: BLOOD PRESSURE INCREASED
     Route: 048
     Dates: start: 20100311, end: 201103
  2. AMARYL [Concomitant]
  3. CRESTOR [Concomitant]
  4. TRICOR [Concomitant]
  5. PROTONIX [Concomitant]

REACTIONS (4)
  - Depression [Recovered/Resolved]
  - Myalgia [Recovered/Resolved]
  - Dry mouth [Recovered/Resolved]
  - Pollakiuria [Recovered/Resolved]
